FAERS Safety Report 24874683 (Version 1)
Quarter: 2025Q1

REPORT INFORMATION
  Report Type: Spontaneous
  Country: CA (occurrence: CA)
  Receive Date: 20250122
  Receipt Date: 20250122
  Transmission Date: 20250408
  Serious: Yes (Hospitalization, Other)
  Sender: PFIZER
  Company Number: CA-PFIZER INC-202500011783

PATIENT
  Age: 42 Year
  Sex: Male
  Weight: 94 kg

DRUGS (24)
  1. CYTARABINE [Suspect]
     Active Substance: CYTARABINE
     Indication: Acute myeloid leukaemia
     Route: 042
  2. MYLOTARG [Suspect]
     Active Substance: GEMTUZUMAB OZOGAMICIN
     Indication: Acute myeloid leukaemia
     Dosage: 5 MG, 1X/DAY
     Route: 042
  3. ACETAMINOPHEN [Concomitant]
     Active Substance: ACETAMINOPHEN
  4. AZITHROMYCIN [Concomitant]
     Active Substance: AZITHROMYCIN
  5. CLINDAMYCIN [Concomitant]
     Active Substance: CLINDAMYCIN
  6. DIMENHYDRINATE [Concomitant]
     Active Substance: DIMENHYDRINATE
  7. HALOPERIDOL [Concomitant]
     Active Substance: HALOPERIDOL
  8. HYDROMORPHONE [Concomitant]
     Active Substance: HYDROMORPHONE
  9. LEVOTHYROXINE [Concomitant]
     Active Substance: LEVOTHYROXINE
  10. MAGNESIUM SULFATE [Concomitant]
     Active Substance: MAGNESIUM SULFATE
  11. METHYLPREDNISOLONE [Concomitant]
     Active Substance: METHYLPREDNISOLONE
  12. MORPHINE [Concomitant]
     Active Substance: MORPHINE
  13. ONDANSETRON [Concomitant]
     Active Substance: ONDANSETRON
  14. PANTOPRAZOLE [Concomitant]
     Active Substance: PANTOPRAZOLE
  15. PIPERACILLIN SODIUM\TAZOBACTAM SODIUM [Concomitant]
     Active Substance: PIPERACILLIN SODIUM\TAZOBACTAM SODIUM
  16. POLYETHYLENE GLYCOL 3350 [Concomitant]
     Active Substance: POLYETHYLENE GLYCOL 3350
  17. POTASSIUM CHLORIDE [Concomitant]
     Active Substance: POTASSIUM CHLORIDE
  18. POTASSIUM PHOSPHATES [Concomitant]
     Active Substance: POTASSIUM PHOSPHATE, DIBASIC\POTASSIUM PHOSPHATE, MONOBASIC
  19. PROCHLORPERAZINE [Concomitant]
     Active Substance: PROCHLORPERAZINE
  20. SODIUM PHOSPHATE [Concomitant]
     Active Substance: SODIUM PHOSPHATE
  21. SULFAMETHOXAZOLE\TRIMETHOPRIM [Concomitant]
     Active Substance: SULFAMETHOXAZOLE\TRIMETHOPRIM
  22. URSODIOL [Concomitant]
     Active Substance: URSODIOL
  23. VALACYCLOVIR [Concomitant]
     Active Substance: VALACYCLOVIR HYDROCHLORIDE
  24. VANCOMYCIN [Concomitant]
     Active Substance: VANCOMYCIN

REACTIONS (18)
  - Acute kidney injury [Recovering/Resolving]
  - Ascites [Recovering/Resolving]
  - Bacteraemia [Recovering/Resolving]
  - Bacterial infection [Recovering/Resolving]
  - Bone marrow failure [Recovering/Resolving]
  - Dyspnoea [Recovering/Resolving]
  - Febrile neutropenia [Recovering/Resolving]
  - Flank pain [Recovering/Resolving]
  - General physical health deterioration [Recovering/Resolving]
  - Hepatomegaly [Recovering/Resolving]
  - Periportal oedema [Recovering/Resolving]
  - Platelet transfusion [Recovering/Resolving]
  - Pneumonia [Recovering/Resolving]
  - Pyrexia [Recovering/Resolving]
  - Respiratory failure [Recovering/Resolving]
  - Sepsis [Recovering/Resolving]
  - Thrombocytopenia [Recovering/Resolving]
  - Venoocclusive disease [Recovering/Resolving]
